FAERS Safety Report 9414781 (Version 1)
Quarter: 2013Q3

REPORT INFORMATION
  Report Type: Spontaneous
  Country: US (occurrence: None)
  Receive Date: 20130718
  Receipt Date: 20130718
  Transmission Date: 20140515
  Serious: Yes (Life-Threatening, Hospitalization)
  Sender: FDA-Public Use
  Company Number: 1713747-2013-99922

PATIENT
  Sex: 0

DRUGS (5)
  1. SALINE [Suspect]
  2. FRESENIUS HEMODIALYSIS MACHINE [Concomitant]
  3. DIALYZER [Concomitant]
  4. GRANUFLO [Concomitant]
  5. NATURELITE [Concomitant]

REACTIONS (1)
  - Unresponsive to stimuli [None]
